FAERS Safety Report 16337759 (Version 1)
Quarter: 2019Q2

REPORT INFORMATION
  Report Type: Spontaneous
  Country: PL (occurrence: PL)
  Receive Date: 20190521
  Receipt Date: 20190521
  Transmission Date: 20190711
  Serious: Yes (Other)
  Sender: FDA-Public Use
  Company Number: PL-BRISTOL-MYERS SQUIBB COMPANY-BMS-2019-045752

PATIENT
  Sex: Female

DRUGS (1)
  1. OPDIVO [Suspect]
     Active Substance: NIVOLUMAB
     Indication: RENAL NEOPLASM
     Dosage: 3 MILLIGRAM/KILOGRAM, Q2WK
     Route: 065
     Dates: start: 201611

REACTIONS (10)
  - Pneumonitis [Unknown]
  - Hepatic lesion [Unknown]
  - Face oedema [Unknown]
  - Hormone level abnormal [Unknown]
  - Neoplasm progression [Unknown]
  - Rash erythematous [Unknown]
  - Tumour pseudoprogression [Unknown]
  - Dyspnoea [Unknown]
  - Oedema peripheral [Unknown]
  - Rash [Unknown]
